FAERS Safety Report 8951077 (Version 1)
Quarter: 2012Q4

REPORT INFORMATION
  Report Type: Spontaneous
  Country: US (occurrence: None)
  Receive Date: 20121129
  Receipt Date: 20121129
  Transmission Date: 20130627
  Serious: Yes (Death, Hospitalization)
  Sender: FDA-Public Use
  Company Number: CLCY20120170

PATIENT
  Age: 65 Year
  Sex: Female

DRUGS (2)
  1. COLCRYS [Suspect]
     Indication: PSEUDOGOUT
     Dates: end: 2012
  2. TRAMADOL [Suspect]
     Indication: DRUG USE FOR UNKNOWN INDICATION
     Dates: end: 2012

REACTIONS (6)
  - Sleep apnoea syndrome [None]
  - Overdose [None]
  - Haemorrhage [None]
  - Fall [None]
  - Head injury [None]
  - Mental disorder [None]
